FAERS Safety Report 12961636 (Version 1)
Quarter: 2016Q4

REPORT INFORMATION
  Report Type: Spontaneous
  Country: JP (occurrence: JP)
  Receive Date: 20161121
  Receipt Date: 20161121
  Transmission Date: 20170207
  Serious: Yes (Other)
  Sender: FDA-Public Use
  Company Number: JP-TEVA-712299ISR

PATIENT
  Age: 65 Year
  Sex: Male

DRUGS (2)
  1. EVEROLIMUS [Suspect]
     Active Substance: EVEROLIMUS
     Route: 050
  2. PACLITAXEL. [Suspect]
     Active Substance: PACLITAXEL
     Route: 050

REACTIONS (1)
  - Vascular stent restenosis [Unknown]
